FAERS Safety Report 10248791 (Version 1)
Quarter: 2014Q2

REPORT INFORMATION
  Report Type: Spontaneous
  Country: FI (occurrence: FI)
  Receive Date: 20140620
  Receipt Date: 20140620
  Transmission Date: 20141212
  Serious: Yes (Other)
  Sender: FDA-Public Use
  Company Number: FI-JNJFOC-20140606735

PATIENT
  Sex: 0

DRUGS (1)
  1. STELARA [Suspect]
     Indication: PSORIASIS
     Route: 058

REACTIONS (1)
  - Neoplasm malignant [Unknown]
